FAERS Safety Report 24564924 (Version 5)
Quarter: 2025Q3

REPORT INFORMATION
  Report Type: Spontaneous
  Country: IN (occurrence: IN)
  Receive Date: 20241030
  Receipt Date: 20250730
  Transmission Date: 20251021
  Serious: Yes (Death, Hospitalization)
  Sender: PFIZER
  Company Number: IN-PFIZER INC-PV202400140635

PATIENT
  Age: 68 Year
  Sex: Male

DRUGS (4)
  1. CRIZOTINIB [Suspect]
     Active Substance: CRIZOTINIB
     Indication: Lung cancer metastatic
     Dosage: 250 MG, 2X/DAY
     Route: 048
     Dates: start: 20210128, end: 20241027
  2. ETOFYLLINE\THEOPHYLLINE [Concomitant]
     Active Substance: ETOFYLLINE\THEOPHYLLINE
     Indication: Dyspnoea
     Dosage: UNK, 2X/DAY
  3. LASIX [Concomitant]
     Active Substance: FUROSEMIDE
     Indication: Micturition disorder
     Dosage: 4 ML, 2X/DAY
  4. RABI M [Concomitant]
     Indication: Pain

REACTIONS (5)
  - Lung cancer metastatic [Fatal]
  - Malignant neoplasm progression [Fatal]
  - Pneumonia [Fatal]
  - Septic shock [Fatal]
  - Hypoglycaemia [Unknown]
